FAERS Safety Report 25178069 (Version 2)
Quarter: 2025Q2

REPORT INFORMATION
  Report Type: Spontaneous
  Country: DE (occurrence: DE)
  Receive Date: 20250409
  Receipt Date: 20250423
  Transmission Date: 20250717
  Serious: Yes (Hospitalization)
  Sender: TEVA
  Company Number: DE-TEVA-VS-3317942

PATIENT
  Age: 54 Year
  Sex: Male

DRUGS (14)
  1. AMPICILLIN [Suspect]
     Active Substance: AMPICILLIN
     Indication: Evidence based treatment
     Route: 065
  2. SULFAMETHOXAZOLE\TRIMETHOPRIM [Suspect]
     Active Substance: SULFAMETHOXAZOLE\TRIMETHOPRIM
     Indication: Evidence based treatment
     Route: 065
  3. CYCLOPHOSPHAMIDE [Suspect]
     Active Substance: CYCLOPHOSPHAMIDE
     Indication: Mantle cell lymphoma
     Route: 065
  4. FLUCYTOSINE [Suspect]
     Active Substance: FLUCYTOSINE
     Indication: Candida infection
     Route: 065
  5. DEXAMETHASONE [Suspect]
     Active Substance: DEXAMETHASONE
     Indication: Mantle cell lymphoma
     Route: 065
  6. DOXORUBICIN [Suspect]
     Active Substance: DOXORUBICIN
     Indication: Mantle cell lymphoma
     Route: 065
  7. RITUXIMAB [Suspect]
     Active Substance: RITUXIMAB
     Indication: Mantle cell lymphoma
     Route: 065
  8. PREDNISONE [Suspect]
     Active Substance: PREDNISONE
     Indication: Mantle cell lymphoma
     Route: 065
  9. CYTARABINE [Suspect]
     Active Substance: CYTARABINE
     Indication: Mantle cell lymphoma
     Route: 065
  10. MEROPENEM [Suspect]
     Active Substance: MEROPENEM
     Indication: Evidence based treatment
     Route: 065
  11. VANCOMYCIN [Suspect]
     Active Substance: VANCOMYCIN
     Indication: Evidence based treatment
     Route: 065
  12. CISPLATIN [Suspect]
     Active Substance: CISPLATIN
     Indication: Mantle cell lymphoma
     Route: 065
  13. VINCRISTINE [Suspect]
     Active Substance: VINCRISTINE
     Indication: Mantle cell lymphoma
     Route: 065
  14. ACYCLOVIR [Concomitant]
     Active Substance: ACYCLOVIR
     Indication: Evidence based treatment
     Route: 065

REACTIONS (7)
  - Encephalitis [Recovering/Resolving]
  - Candida infection [Recovering/Resolving]
  - Pancytopenia [Recovering/Resolving]
  - Nervous system disorder [Recovering/Resolving]
  - COVID-19 [Recovering/Resolving]
  - Cholecystitis acute [Recovering/Resolving]
  - Neutropenia [Recovering/Resolving]
